FAERS Safety Report 8080006-4 (Version None)
Quarter: 2012Q1

REPORT INFORMATION
  Report Type: 
  Country: None (occurrence: None)
  Receive Date: 20120128
  Receipt Date: 20110803
  Transmission Date: 20120608
  Serious: No
  Sender: FDA-Public Use
  Company Number: US-ABBOTT-11P-163-0843829-00

PATIENT
  Age: 59 Year
  Sex: Male

DRUGS (8)
  1. TESTOSTERONE [Concomitant]
     Indication: PRODUCT USED FOR UNKNOWN INDICATION
     Route: 050
  2. ASACOL [Concomitant]
     Indication: CROHN'S DISEASE
  3. GABAPENTIN [Concomitant]
     Indication: NEUROPATHY PERIPHERAL
  4. HUMIRA [Suspect]
     Indication: RHEUMATOID ARTHRITIS
     Dates: start: 20080101
  5. CALCITONIN SALMON [Concomitant]
     Indication: OSTEOPOROSIS
     Dosage: PUFFER
  6. HUMIRA [Suspect]
     Indication: CROHN'S DISEASE
  7. MORPHINE [Concomitant]
     Indication: ARTHRALGIA
  8. MORPHINE [Concomitant]
     Dosage: FAST ACTING

REACTIONS (8)
  - URTICARIA [None]
  - VISUAL IMPAIRMENT [None]
  - DRUG INEFFECTIVE [None]
  - ARTHRALGIA [None]
  - INJECTION SITE WARMTH [None]
  - INJECTION SITE ERYTHEMA [None]
  - TINNITUS [None]
  - VISION BLURRED [None]
